FAERS Safety Report 24934656 (Version 1)
Quarter: 2025Q1

REPORT INFORMATION
  Report Type: Report from Study
  Country: US (occurrence: US)
  Receive Date: 20250206
  Receipt Date: 20250206
  Transmission Date: 20250409
  Serious: No
  Sender: EXELIXIS
  Company Number: US-EXELIXIS-EXL-2024-001361

PATIENT
  Sex: Male

DRUGS (16)
  1. CABOMETYX [Suspect]
     Active Substance: CABOZANTINIB S-MALATE
     Indication: Renal cell carcinoma
     Dates: start: 202408
  2. CABOMETYX [Suspect]
     Active Substance: CABOZANTINIB S-MALATE
     Dates: start: 20240927, end: 20241017
  3. OZEMPIC [Suspect]
     Active Substance: SEMAGLUTIDE
     Indication: Product used for unknown indication
  4. TRESIBA [Concomitant]
     Active Substance: INSULIN DEGLUDEC
  5. ATORVASTATIN [Concomitant]
     Active Substance: ATORVASTATIN
  6. CEPHALEXIN [Concomitant]
     Active Substance: CEPHALEXIN
  7. NIFEDIPINE [Concomitant]
     Active Substance: NIFEDIPINE
  8. FARXIGA [Concomitant]
     Active Substance: DAPAGLIFLOZIN PROPANEDIOL
  9. PREDNISONE [Concomitant]
     Active Substance: PREDNISONE
  10. METOPROLOL TARTRATE [Concomitant]
     Active Substance: METOPROLOL TARTRATE
  11. VITAMIN D NOS [Concomitant]
     Active Substance: CHOLECALCIFEROL\ERGOCALCIFEROL
  12. OXYCODONE [Concomitant]
     Active Substance: OXYCODONE
  13. TACROLIMUS [Concomitant]
     Active Substance: TACROLIMUS
  14. ALLOPURINOL [Concomitant]
     Active Substance: ALLOPURINOL
  15. CALCIUM [Concomitant]
     Active Substance: CALCIUM
  16. MAGNESIUM [Concomitant]
     Active Substance: MAGNESIUM

REACTIONS (14)
  - Renal disorder [Unknown]
  - Chest pain [Recovered/Resolved]
  - Constipation [Unknown]
  - Dyspepsia [Recovered/Resolved]
  - Nausea [Recovering/Resolving]
  - Limb discomfort [Unknown]
  - Pruritus [Unknown]
  - Protein urine present [Unknown]
  - Somnolence [Unknown]
  - Musculoskeletal chest pain [Recovered/Resolved]
  - Neoplasm [Unknown]
  - Back pain [Recovered/Resolved]
  - Blood creatinine increased [Unknown]
  - Weight decreased [Recovering/Resolving]
